FAERS Safety Report 8501361 (Version 2)
Quarter: 2012Q4

REPORT INFORMATION
  Report Type: 
  Country: DE (occurrence: DE)
  Receive Date: 20120410
  Receipt Date: 20121019
  Transmission Date: 20130627
  Serious: Yes (Death, Hospitalization, Other)
  Sender: FDA-Public Use
  Company Number: DE-BRISTOL-MYERS SQUIBB COMPANY-16170540

PATIENT
  Age: 58 Year
  Sex: Female
  Weight: 80 kg

DRUGS (7)
  1. YERVOY [Suspect]
     Indication: MALIGNANT MELANOMA
     Dosage: No of dose:4 240mg:1G6r114-29jul11.19aug11.08sep11.1G6r114+1G6r12429sep11
     Route: 042
     Dates: start: 20110729, end: 20110929
  2. PANTOZOL [Concomitant]
  3. NOVALGIN [Concomitant]
  4. METOPROLOL [Concomitant]
  5. CITALOPRAM [Concomitant]
  6. KREON [Concomitant]
  7. CORTISONE [Concomitant]

REACTIONS (4)
  - Malignant neoplasm progression [Fatal]
  - Diarrhoea [Recovered/Resolved]
  - Pancreatic insufficiency [Recovered/Resolved]
  - Transaminases increased [Unknown]
